FAERS Safety Report 7637028-4 (Version None)
Quarter: 2011Q3

REPORT INFORMATION
  Report Type: 
  Country: None (occurrence: None)
  Receive Date: 20110726
  Receipt Date: 20110713
  Transmission Date: 20111222
  Serious: Yes (Congenital Anomaly, Other)
  Sender: FDA-Public Use
  Company Number: US-PFIZER INC-2011160704

PATIENT
  Sex: Male
  Weight: 3.2 kg

DRUGS (3)
  1. ZOLOFT [Concomitant]
     Indication: DEPRESSION
     Dosage: 100MG, UNK
     Route: 064
     Dates: start: 20070919
  2. PRENATAL VITAMINS [Concomitant]
     Dosage: UNK
     Route: 064
     Dates: start: 20071120
  3. EFFEXOR [Suspect]
     Dosage: UNK
     Route: 064

REACTIONS (8)
  - HYPOPLASTIC RIGHT HEART SYNDROME [None]
  - PATENT DUCTUS ARTERIOSUS [None]
  - HEART DISEASE CONGENITAL [None]
  - ATRIAL SEPTAL DEFECT [None]
  - TRANSPOSITION OF THE GREAT VESSELS [None]
  - PULMONARY ARTERY ATRESIA [None]
  - MATERNAL EXPOSURE DURING PREGNANCY [None]
  - PULMONARY VALVE STENOSIS [None]
